FAERS Safety Report 9346627 (Version 1)
Quarter: 2013Q2

REPORT INFORMATION
  Report Type: Spontaneous
  Country: GB (occurrence: GB)
  Receive Date: 20130613
  Receipt Date: 20130613
  Transmission Date: 20140414
  Serious: Yes (Death, Other)
  Sender: FDA-Public Use
  Company Number: GB-PFIZER INC-2013148790

PATIENT
  Age: 69 Year
  Sex: Male
  Weight: 105 kg

DRUGS (11)
  1. FRAGMIN [Suspect]
     Indication: PROPHYLAXIS
     Dosage: 18000 IU, UNK
     Route: 058
     Dates: start: 20130501, end: 20130507
  2. FRAGMIN [Suspect]
     Indication: PULMONARY EMBOLISM
  3. ALTEPLASE [Suspect]
     Indication: PULMONARY EMBOLISM
     Dosage: 10MG PLUS 90MG
     Route: 042
     Dates: start: 20130503
  4. MYCOPHENOLATE MOFETIL [Concomitant]
     Dosage: 500 MG, UNK
     Dates: end: 20130508
  5. TACROLIMUS [Concomitant]
     Dosage: 2 MG, 2X/DAY
     Dates: end: 20130508
  6. PREDNISOLONE [Concomitant]
     Dosage: 5 MG DAILY
     Dates: end: 20130508
  7. NIFEDIPINE [Concomitant]
     Dosage: 90 MG DAILY
     Dates: end: 20130502
  8. OMEPRAZOLE [Concomitant]
     Dosage: 20 MG DAILY
     Dates: end: 20130508
  9. SIMVASTATIN [Concomitant]
     Dosage: 20 MG DAILY
     Dates: end: 20130502
  10. DOXAZOSIN [Concomitant]
     Dosage: 4 MG DAILY
     Dates: end: 20130502
  11. ALFACALCIDOL [Concomitant]
     Dosage: 250 NG DAILY

REACTIONS (5)
  - Renal failure acute [Fatal]
  - Hypotension [Fatal]
  - Haemoglobin decreased [Fatal]
  - Peritoneal haemorrhage [Fatal]
  - Muscle haemorrhage [Fatal]
